FAERS Safety Report 7594665-3 (Version None)
Quarter: 2011Q3

REPORT INFORMATION
  Report Type: 
  Country: None (occurrence: None)
  Receive Date: 20110707
  Receipt Date: 20110628
  Transmission Date: 20111222
  Serious: Yes (Other)
  Sender: FDA-Public Use
  Company Number: JP-JNJFOC-20100907113

PATIENT
  Sex: Male

DRUGS (32)
  1. NORVIR [Suspect]
     Route: 048
     Dates: start: 20061010
  2. NORVIR [Suspect]
     Route: 048
     Dates: start: 20061010
  3. URSO 250 [Concomitant]
     Indication: LIVER DISORDER
     Route: 048
     Dates: start: 20070401
  4. KALETRA [Suspect]
     Indication: HIV INFECTION
     Route: 048
     Dates: start: 20001229, end: 20060410
  5. ZERIT [Suspect]
     Route: 048
     Dates: start: 19970924, end: 19990818
  6. VIDEX [Suspect]
     Route: 048
     Dates: start: 20001229, end: 20060410
  7. VIDEX [Suspect]
     Route: 048
     Dates: start: 19960724, end: 19970924
  8. EFAVIRENZ [Concomitant]
     Indication: HIV INFECTION
     Route: 048
     Dates: start: 19990819, end: 20040331
  9. VIRACEPT [Concomitant]
     Indication: HIV INFECTION
     Route: 048
     Dates: start: 19970924, end: 19990818
  10. NORVIR [Suspect]
     Indication: HIV INFECTION
     Route: 048
     Dates: start: 20080401
  11. NORVIR [Suspect]
     Route: 048
     Dates: start: 19961218, end: 19970924
  12. NORVIR [Suspect]
     Route: 048
     Dates: start: 20000401, end: 20001228
  13. INVIRASE [Concomitant]
     Indication: HIV INFECTION
     Route: 048
     Dates: start: 19990819, end: 20001228
  14. PROZEI [Concomitant]
     Indication: HIV INFECTION
     Route: 048
     Dates: start: 20040401, end: 20051110
  15. PREZISTA [Suspect]
     Indication: HIV INFECTION
     Route: 048
     Dates: start: 20061111
  16. INTELENCE [Suspect]
     Indication: HIV INFECTION
     Route: 048
     Dates: start: 20081011
  17. VIDEX [Suspect]
     Indication: HIV INFECTION
     Route: 048
     Dates: start: 19960313, end: 19970924
  18. ZIAGEN [Concomitant]
     Indication: HIV INFECTION
     Route: 048
     Dates: start: 19990819, end: 20001228
  19. RETROVIR [Concomitant]
     Indication: HIV INFECTION
     Route: 048
     Dates: start: 19960313, end: 19970924
  20. CROSS EIGHT M [Concomitant]
     Indication: FACTOR VIII DEFICIENCY
     Dates: start: 20080401
  21. ZERIT [Suspect]
     Indication: HIV INFECTION
     Route: 048
     Dates: start: 20001229, end: 20060410
  22. LEXIVA [Suspect]
     Indication: HIV INFECTION
     Route: 048
     Dates: start: 20051111, end: 20060410
  23. TIPRANAVIR [Suspect]
     Indication: HIV INFECTION
     Route: 065
     Dates: start: 20060411, end: 20061110
  24. VIDEX [Suspect]
     Route: 048
     Dates: start: 19951018, end: 19951206
  25. VIDEX [Suspect]
     Route: 048
     Dates: start: 19951206, end: 19960313
  26. NORVIR [Suspect]
     Route: 048
     Dates: start: 19990819
  27. NORVIR [Suspect]
     Route: 048
     Dates: start: 20060411, end: 20061009
  28. EPIVIR [Concomitant]
     Indication: HIV INFECTION
     Route: 048
     Dates: start: 19970924, end: 19990818
  29. PREZISTA [Suspect]
     Route: 048
     Dates: start: 20080401
  30. TRUVADA [Concomitant]
     Indication: HIV INFECTION
     Route: 048
     Dates: start: 20060411
  31. ISENTRESS [Concomitant]
     Indication: HIV INFECTION
     Dates: start: 20070807, end: 20080331
  32. ISENTRESS [Concomitant]
     Route: 048
     Dates: start: 20080401

REACTIONS (7)
  - LIVER DISORDER [None]
  - HYPERBILIRUBINAEMIA [None]
  - CONDITION AGGRAVATED [None]
  - BLOOD LACTATE DEHYDROGENASE INCREASED [None]
  - GAMMA-GLUTAMYLTRANSFERASE INCREASED [None]
  - HYPERTRIGLYCERIDAEMIA [None]
  - BLOOD ALKALINE PHOSPHATASE INCREASED [None]
